FAERS Safety Report 7465278-9 (Version None)
Quarter: 2011Q2

REPORT INFORMATION
  Report Type: 
  Country: None (occurrence: None)
  Receive Date: 20110509
  Receipt Date: 20110503
  Transmission Date: 20111010
  Serious: Yes (Life-Threatening, Hospitalization, Disabling, Other)
  Sender: FDA-Public Use
  Company Number: PHFR2010IE05190

PATIENT
  Sex: Female
  Weight: 95.25 kg

DRUGS (28)
  1. CLOZARIL [Suspect]
     Indication: SCHIZOPHRENIA
     Dosage: 200 MG IN EVENING
     Route: 048
     Dates: start: 19991013, end: 20101104
  2. DIFLUCAN [Concomitant]
     Dosage: UNK
  3. EZETIMIBE/SAMVASTATIN [Concomitant]
     Dosage: UNK
     Route: 065
  4. DOVONEX [Concomitant]
     Indication: PSORIASIS
     Dosage: 1 DF, PRN
     Route: 061
  5. DEXAMETHASONE [Concomitant]
     Dosage: UNK
  6. LITHIUM [Concomitant]
     Indication: MANIA
     Dosage: 400 MG, UNK
     Dates: start: 20110215
  7. CLOZARIL [Suspect]
     Dosage: 75 MG AM, 200 MG PM
     Route: 048
  8. SEROXAT [Concomitant]
  9. INEGY [Concomitant]
     Dosage: 1 DF, QD
     Route: 048
  10. STEROIDS NOS [Concomitant]
  11. CLOZARIL [Suspect]
     Dosage: UNK
     Route: 048
     Dates: start: 20101230
  12. VALTREX [Concomitant]
  13. LACTULOSE [Concomitant]
     Indication: CONSTIPATION
     Dosage: 10 ML, QD
     Route: 048
  14. AMPICILLIN SODIUM/SULBACTAM SODIUM [Concomitant]
  15. MYCOSTATIN [Concomitant]
     Indication: CANDIDIASIS
     Dosage: 1 ML, QD
  16. PROTON PUMP INHIBITORS [Concomitant]
  17. ARIPIPRAZOLE [Concomitant]
     Dosage: 5 MG, UNK
     Route: 048
  18. GALFER [Concomitant]
     Indication: ANAEMIA
     Dosage: 1 DF, QD
     Route: 048
  19. FOLIC ACID [Concomitant]
     Indication: BLOOD FOLATE DECREASED
     Dosage: 5 MG, QD
     Route: 048
  20. LORAZEPAM [Concomitant]
     Indication: AGITATION
     Dosage: 1 MG, PRN
  21. BENZODIAZEPINES [Concomitant]
  22. CLOZARIL [Suspect]
     Dosage: 125 MG, QD
     Route: 048
     Dates: start: 20101220
  23. ANTIHYPERTENSIVES [Concomitant]
  24. SENNOCOL [Concomitant]
     Indication: CONSTIPATION
     Dosage: 2 DF, QD
     Route: 048
  25. FLUCONAZOLE [Concomitant]
  26. PAROXETINE HCL [Concomitant]
  27. VALACICLOVIR [Concomitant]
     Dosage: UNK
  28. LITHIUM [Concomitant]
     Dosage: 200 MG/ NOCTE
     Route: 048

REACTIONS (18)
  - HYPONATRAEMIA [None]
  - THROMBOCYTOPENIA [None]
  - PSYCHOTIC DISORDER [None]
  - MANIA [None]
  - PRESSURE OF SPEECH [None]
  - CONFUSIONAL STATE [None]
  - BLOOD CREATINE PHOSPHOKINASE INCREASED [None]
  - CONTUSION [None]
  - MARROW HYPERPLASIA [None]
  - C-REACTIVE PROTEIN INCREASED [None]
  - NEUROLEPTIC MALIGNANT SYNDROME [None]
  - IDIOPATHIC THROMBOCYTOPENIC PURPURA [None]
  - SEDATION [None]
  - AFFECT LABILITY [None]
  - MENORRHAGIA [None]
  - MENTAL IMPAIRMENT [None]
  - LOWER RESPIRATORY TRACT INFECTION [None]
  - IDEAS OF REFERENCE [None]
